FAERS Safety Report 18179426 (Version 1)
Quarter: 2020Q3

REPORT INFORMATION
  Report Type: Report from Study
  Country: BE (occurrence: BE)
  Receive Date: 20200821
  Receipt Date: 20200821
  Transmission Date: 20201103
  Serious: Yes (Death, Other)
  Sender: FDA-Public Use
  Company Number: BE-AUROBINDO-AUR-APL-2020-044570

PATIENT
  Age: 80 Year
  Sex: Male

DRUGS (1)
  1. MELPHALAN INJECTION [Suspect]
     Active Substance: MELPHALAN
     Indication: ACUTE MYELOID LEUKAEMIA
     Dosage: FIRST CYCLE
     Route: 042

REACTIONS (3)
  - Coagulopathy [Fatal]
  - Cerebral haemorrhage [Fatal]
  - Thrombocytopenia [Fatal]
